FAERS Safety Report 4746480-3 (Version None)
Quarter: 2005Q3

REPORT INFORMATION
  Report Type: 
  Country: None (occurrence: None)
  Receive Date: 20050817
  Receipt Date: 20050810
  Transmission Date: 20060218
  Serious: Yes (Other)
  Sender: FDA-Public Use
  Company Number: GB-JNJFOC-20050802713

PATIENT
  Sex: Male
  Weight: 75 kg

DRUGS (7)
  1. REMICADE [Suspect]
     Indication: RHEUMATOID ARTHRITIS
     Route: 042
  2. METHOTREXATE [Concomitant]
     Route: 065
  3. PREDNISOLONE [Concomitant]
     Route: 065
  4. ALBUTEROL SULFATE HFA [Concomitant]
     Route: 065
  5. PULMICORT [Concomitant]
     Route: 065
  6. ORUVAIL [Concomitant]
     Route: 065
  7. PARACETAMOL [Concomitant]
     Route: 065

REACTIONS (1)
  - NON-HODGKIN'S LYMPHOMA [None]
